FAERS Safety Report 17746589 (Version 1)
Quarter: 2020Q2

REPORT INFORMATION
  Report Type: Spontaneous
  Country: US (occurrence: US)
  Receive Date: 20200505
  Receipt Date: 20200505
  Transmission Date: 20200714
  Serious: No
  Sender: FDA-Public Use
  Company Number: US-ROCHE-2332976

PATIENT
  Age: 70 Year
  Sex: Female
  Weight: 74.91 kg

DRUGS (2)
  1. LEVOTHYROXINE. [Concomitant]
     Active Substance: LEVOTHYROXINE
     Indication: HYPOTHYROIDISM
     Dosage: TAKING FOR 40 YEARS ;ONGOING: YES
     Route: 065
  2. ESBRIET [Suspect]
     Active Substance: PIRFENIDONE
     Indication: IDIOPATHIC PULMONARY FIBROSIS
     Route: 048
     Dates: start: 20190201

REACTIONS (2)
  - Rash [Not Recovered/Not Resolved]
  - Diarrhoea [Recovering/Resolving]

NARRATIVE: CASE EVENT DATE: 20190509
